FAERS Safety Report 17188887 (Version 1)
Quarter: 2019Q4

REPORT INFORMATION
  Report Type: Spontaneous
  Country: RE (occurrence: RE)
  Receive Date: 20191222
  Receipt Date: 20191222
  Transmission Date: 20200122
  Serious: Yes (Hospitalization, Other)
  Sender: FDA-Public Use
  Company Number: RE-BRISTOL-MYERS SQUIBB COMPANY-BMS-2019-075846

PATIENT
  Age: 51 Year
  Sex: Female
  Weight: 95 kg

DRUGS (1)
  1. ELIQUIS [Suspect]
     Active Substance: APIXABAN
     Indication: CEREBROVASCULAR ACCIDENT PROPHYLAXIS
     Dosage: 10 MILLIGRAM, DAILY
     Route: 048

REACTIONS (4)
  - Colonoscopy [Unknown]
  - Colorectal adenocarcinoma [Unknown]
  - Metrorrhagia [Unknown]
  - Rectal haemorrhage [Unknown]

NARRATIVE: CASE EVENT DATE: 20190729
